FAERS Safety Report 8504477-1 (Version None)
Quarter: 2012Q3

REPORT INFORMATION
  Report Type: 
  Country: None (occurrence: None)
  Receive Date: 20120711
  Receipt Date: 20120705
  Transmission Date: 20120928
  Serious: Yes (Death, Hospitalization)
  Sender: FDA-Public Use
  Company Number: CZ-PFIZER INC-2012149911

PATIENT
  Age: 65 Year
  Sex: Male

DRUGS (6)
  1. BLINDED THERAPY [Suspect]
     Indication: TYPE 2 DIABETES MELLITUS
     Dosage: SAXAGLIPTIN/PLACEBO
     Dates: start: 20101027
  2. STADAMET [Suspect]
     Indication: TYPE 2 DIABETES MELLITUS
     Dosage: 1500 MG, UNK
  3. CALCIUM CARBONATE [Concomitant]
     Dosage: UNK
  4. MEDROL [Suspect]
     Indication: SARCOIDOSIS
     Dosage: UNK
  5. THEOPHYLLINE [Concomitant]
     Dosage: UNK
  6. CARDILAN [Concomitant]
     Dosage: UNK

REACTIONS (8)
  - PANCREATITIS [None]
  - PNEUMONIA [None]
  - SUBDIAPHRAGMATIC ABSCESS [None]
  - HYPERGLYCAEMIA [None]
  - CHOLELITHIASIS [None]
  - RESPIRATORY FAILURE [None]
  - MYOCARDIAL ISCHAEMIA [None]
  - SUPRAVENTRICULAR TACHYCARDIA [None]
